FAERS Safety Report 19060750 (Version 4)
Quarter: 2021Q2

REPORT INFORMATION
  Report Type: Report from Study
  Country: US (occurrence: US)
  Receive Date: 20210325
  Receipt Date: 20210412
  Transmission Date: 20210717
  Serious: Yes (Hospitalization, Other)
  Sender: FDA-Public Use
  Company Number: US-GLAXOSMITHKLINE-US2021AMR066718

PATIENT
  Sex: Female

DRUGS (2)
  1. ALEVE [Concomitant]
     Active Substance: NAPROXEN SODIUM
     Indication: MIGRAINE
     Dosage: UNK
  2. NIRAPARIB [Suspect]
     Active Substance: NIRAPARIB
     Indication: OVARIAN CANCER
     Dosage: 200 MG, QD
     Dates: start: 20210312

REACTIONS (19)
  - Constipation [Not Recovered/Not Resolved]
  - Insomnia [Recovered/Resolved]
  - Muscular weakness [Recovered/Resolved]
  - Headache [Unknown]
  - Fatigue [Not Recovered/Not Resolved]
  - Dizziness [Recovered/Resolved]
  - Dyspnoea exertional [Unknown]
  - Vertigo [Unknown]
  - Appetite disorder [Recovering/Resolving]
  - Palpitations [Unknown]
  - Halo vision [Unknown]
  - Head discomfort [Unknown]
  - Decreased activity [Unknown]
  - Near death experience [Unknown]
  - Off label use [Unknown]
  - Gait disturbance [Recovered/Resolved]
  - Balance disorder [Unknown]
  - Energy increased [Recovered/Resolved]
  - Platelet count decreased [Unknown]
